FAERS Safety Report 23320310 (Version 1)
Quarter: 2023Q4

REPORT INFORMATION
  Report Type: Spontaneous
  Country: US (occurrence: None)
  Receive Date: 20231219
  Receipt Date: 20231219
  Transmission Date: 20240109
  Serious: No
  Sender: FDA-Public Use
  Company Number: None

PATIENT

DRUGS (2)
  1. FENTANYL\ROPIVACAINE [Suspect]
     Active Substance: FENTANYL\ROPIVACAINE
  2. INSULIN NOS [Suspect]
     Active Substance: INSULIN NOS

REACTIONS (4)
  - Intercepted product administration error [None]
  - Product label confusion [None]
  - Packaging design issue [None]
  - Wrong product stored [None]
